FAERS Safety Report 7280691-0 (Version None)
Quarter: 2011Q1

REPORT INFORMATION
  Report Type: 
  Country: None (occurrence: None)
  Receive Date: 20110208
  Receipt Date: 20110131
  Transmission Date: 20110831
  Serious: Yes (Death)
  Sender: FDA-Public Use
  Company Number: A0912079A

PATIENT
  Age: 70 Year
  Sex: Female

DRUGS (1)
  1. TYKERB [Suspect]
     Dates: start: 20100420

REACTIONS (1)
  - NEOPLASM MALIGNANT [None]
